FAERS Safety Report 15383573 (Version 8)
Quarter: 2019Q1

REPORT INFORMATION
  Report Type: Spontaneous
  Country: US (occurrence: US)
  Receive Date: 20180913
  Receipt Date: 20190108
  Transmission Date: 20190417
  Serious: Yes (Hospitalization, Other)
  Sender: FDA-Public Use
  Company Number: US-ACTELION-A-NJ2018-178597

PATIENT
  Age: 75 Year
  Sex: Female
  Weight: 52.15 kg

DRUGS (9)
  1. UPTRAVI [Suspect]
     Active Substance: SELEXIPAG
     Dosage: 400 MCG, BID
     Route: 048
  2. UPTRAVI [Suspect]
     Active Substance: SELEXIPAG
     Dosage: 1000 MCG, UNK
     Route: 048
  3. ADCIRCA [Interacting]
     Active Substance: TADALAFIL
     Indication: PRODUCT USED FOR UNKNOWN INDICATION
     Route: 065
  4. NITROGLYCERINE [Interacting]
     Active Substance: NITROGLYCERIN
     Indication: PRODUCT USED FOR UNKNOWN INDICATION
     Route: 065
  5. UPTRAVI [Suspect]
     Active Substance: SELEXIPAG
     Indication: PULMONARY ARTERIAL HYPERTENSION
     Dosage: 1600 MCG, BID
     Route: 048
  6. UPTRAVI [Suspect]
     Active Substance: SELEXIPAG
     Dosage: 600 MCG, BID
     Route: 048
  7. UPTRAVI [Suspect]
     Active Substance: SELEXIPAG
     Dosage: 1000 MCG, BID
     Route: 048
  8. OPSUMIT [Suspect]
     Active Substance: MACITENTAN
     Indication: PULMONARY ARTERIAL HYPERTENSION
     Dosage: 10 MG, QD
     Route: 048
  9. OXYGEN. [Concomitant]
     Active Substance: OXYGEN

REACTIONS (18)
  - Decreased appetite [Unknown]
  - Weight decreased [Unknown]
  - Migraine [Unknown]
  - Heart rate increased [Unknown]
  - Product administration error [Unknown]
  - Cardiac flutter [Unknown]
  - Dyspnoea [Unknown]
  - Dry mouth [Unknown]
  - Drug interaction [Unknown]
  - Sleep apnoea syndrome [Unknown]
  - Feeling abnormal [Unknown]
  - Pulmonary thrombosis [Unknown]
  - Headache [Recovering/Resolving]
  - Asthenia [Unknown]
  - Vaccination complication [Unknown]
  - Foot fracture [Unknown]
  - Fall [Unknown]
  - Personality change [Unknown]
